FAERS Safety Report 12088349 (Version 2)
Quarter: 2016Q1

REPORT INFORMATION
  Report Type: Report from Study
  Country: JP (occurrence: JP)
  Receive Date: 20160218
  Receipt Date: 20160319
  Transmission Date: 20160526
  Serious: Yes (Death)
  Sender: FDA-Public Use
  Company Number: JP-AMGEN-JPNCT2016019360

PATIENT
  Age: 84 Year
  Sex: Male
  Weight: 48 kg

DRUGS (17)
  1. DARBEPOETIN ALFA [Suspect]
     Active Substance: DARBEPOETIN ALFA
     Indication: MYELODYSPLASTIC SYNDROME
     Dosage: 240 MUG, QWK
     Route: 058
     Dates: start: 20150210, end: 20151124
  2. BERASTOLIN [Concomitant]
     Indication: CHRONIC GASTRITIS
     Dosage: 60 MG, UNK
     Route: 048
  3. BAYASPIRIN [Concomitant]
     Active Substance: ASPIRIN
     Dosage: 100 MG, UNK
     Route: 048
  4. OXAROL [Concomitant]
     Active Substance: MAXACALCITOL
     Indication: HYPERPARATHYROIDISM SECONDARY
     Dosage: 15 MUG, UNK
     Route: 042
     Dates: start: 20150618
  5. ALYPROST [Concomitant]
     Indication: ARTERIAL OCCLUSIVE DISEASE
     Dosage: 5 MUG, UNK
     Route: 065
     Dates: start: 20150305, end: 20151104
  6. FAMOTIDINE. [Concomitant]
     Active Substance: FAMOTIDINE
     Dosage: 10 MG, UNK
     Route: 048
     Dates: start: 20151105
  7. SIGMART [Concomitant]
     Active Substance: NICORANDIL
     Indication: ANGINA UNSTABLE
     Dosage: 15 MG, UNK
     Route: 048
     Dates: start: 20150828
  8. MARZULENE ES                       /00518301/ [Concomitant]
     Active Substance: GLUTAMINE\SODIUM GUALENATE
     Indication: CHRONIC GASTRITIS
     Dosage: 3 MG, UNK
     Route: 048
  9. ADALAT [Concomitant]
     Active Substance: NIFEDIPINE
     Indication: HYPERTENSION
     Dosage: 40 MG, UNK
     Route: 048
  10. CARDENALIN [Concomitant]
     Active Substance: DOXAZOSIN MESYLATE
     Indication: HYPERTENSION
     Dosage: 4 MG, UNK
     Route: 048
  11. PALUX [Concomitant]
     Active Substance: ALPROSTADIL
     Indication: ARTERIAL OCCLUSIVE DISEASE
     Dosage: 30 MUG, UNK
     Route: 065
     Dates: start: 20151105
  12. AZILVA [Concomitant]
     Active Substance: AZILSARTAN KAMEDOXOMIL
     Indication: HYPERTENSION
     Dosage: 40 MG, UNK
     Route: 048
  13. L CARTIN FF [Concomitant]
     Active Substance: LEVOCARNITINE
     Indication: CARNITINE DEFICIENCY
     Dosage: 1000 MG, UNK
     Route: 042
     Dates: start: 20140401
  14. ARTIST [Concomitant]
     Active Substance: CARVEDILOL
     Dosage: 10 MG, UNK
     Route: 048
  15. DEPAS [Concomitant]
     Active Substance: ETIZOLAM
     Dosage: 0.5 MG, UNK
     Route: 048
  16. MYSLEE [Concomitant]
     Active Substance: ZOLPIDEM TARTRATE
     Dosage: 5 MG, UNK
     Route: 048
  17. JUZENTAIHOTO                       /07985601/ [Concomitant]
     Active Substance: HERBALS
     Dosage: UNK
     Route: 048
     Dates: start: 20150618

REACTIONS (1)
  - Death [Fatal]

NARRATIVE: CASE EVENT DATE: 20151127
